FAERS Safety Report 4340523-7 (Version None)
Quarter: 2004Q2

REPORT INFORMATION
  Report Type: 
  Country: None (occurrence: None)
  Receive Date: 20040414
  Receipt Date: 20040401
  Transmission Date: 20050107
  Serious: Yes (Death, Life-Threatening, Hospitalization, Other)
  Sender: FDA-Public Use
  Company Number: 2004022458

PATIENT
  Age: 44 Year
  Sex: Male

DRUGS (8)
  1. VFEND [Suspect]
     Indication: ASPERGILLOSIS
     Dosage: 400 MG (UNKNOWN), INTRAVENOUS
     Route: 042
     Dates: start: 20040105, end: 20040210
  2. GANCICLOVIR SODIUM [Suspect]
     Indication: ILL-DEFINED DISORDER
     Dosage: 900 MG (UNKNOWN), INTRAVENOUS
     Route: 042
     Dates: start: 20040121, end: 20040207
  3. OFLOXACIN [Suspect]
     Indication: ILL-DEFINED DISORDER
     Dosage: 400 MG (UNKNOWN), INTRAVENOUS
     Route: 042
     Dates: start: 20040129, end: 20040207
  4. CLAVENTIN (CLAVULANATE POTASSIUM, TICARCILLIN DISODIUM) [Suspect]
     Indication: ILL-DEFINED DISORDER
     Dosage: 15 GRAM (UNKNOWN), INTRAVENOUS
     Route: 042
     Dates: start: 20040121, end: 20040212
  5. CYCLOSPORINE [Suspect]
     Indication: ILL-DEFINED DISORDER
     Dosage: 100 MG (UNKNOWN), ORAL
     Route: 048
     Dates: start: 20031219, end: 20040222
  6. CASPOFUNGIN ACETATE (CASPOFUNGIN ACETATE) [Suspect]
     Indication: ILL-DEFINED DISORDER
     Dosage: 50 MG (UNKNOWN), INTRAVENOUS
     Route: 042
     Dates: start: 20040121, end: 20040207
  7. VANCOMYCIN [Concomitant]
  8. AMPHOTERICIN B [Concomitant]

REACTIONS (17)
  - ACIDOSIS [None]
  - ACUTE PULMONARY OEDEMA [None]
  - AGGRESSION [None]
  - AGITATION [None]
  - CONFUSIONAL STATE [None]
  - DEPRESSED LEVEL OF CONSCIOUSNESS [None]
  - DISORIENTATION [None]
  - DRUG INEFFECTIVE [None]
  - ENCEPHALOPATHY [None]
  - MULTI-ORGAN FAILURE [None]
  - MYOCLONUS [None]
  - RENAL FAILURE [None]
  - RESPIRATORY DISTRESS [None]
  - RESPIRATORY SYNCYTIAL VIRUS INFECTION [None]
  - STAPHYLOCOCCAL INFECTION [None]
  - TORTICOLLIS [None]
  - TREMOR [None]
